APPROVED DRUG PRODUCT: INSPRA
Active Ingredient: EPLERENONE
Strength: 50MG
Dosage Form/Route: TABLET;ORAL
Application: N021437 | Product #002 | TE Code: AB
Applicant: UPJOHN US 2 LLC
Approved: Sep 27, 2002 | RLD: Yes | RS: Yes | Type: RX